FAERS Safety Report 9280362 (Version 3)
Quarter: 2013Q3

REPORT INFORMATION
  Report Type: Report from Study
  Country: BR (occurrence: BR)
  Receive Date: 20130509
  Receipt Date: 20130823
  Transmission Date: 20140515
  Serious: Yes (Hospitalization)
  Sender: FDA-Public Use
  Company Number: BR-ROCHE-1222081

PATIENT
  Sex: Female
  Weight: 65 kg

DRUGS (8)
  1. MABTHERA [Suspect]
     Indication: RHEUMATOID ARTHRITIS
     Route: 042
     Dates: start: 201006
  2. AMITRIPTYLINE [Suspect]
     Indication: FIBROMYALGIA
     Route: 065
  3. ARAVA [Concomitant]
     Indication: RHEUMATOID ARTHRITIS
  4. CALTRATE [Concomitant]
     Indication: OSTEOPOROSIS
  5. HYDROCHLOROTHIAZIDE [Concomitant]
     Indication: OSTEOPOROSIS
  6. ACLASTA [Concomitant]
     Indication: OSTEOPOROSIS
     Route: 065
  7. PREDNISONE [Concomitant]
     Indication: RHEUMATOID ARTHRITIS
     Route: 065
  8. OMEPRAZOLE [Concomitant]
     Indication: RHEUMATOID ARTHRITIS

REACTIONS (14)
  - Arthropathy [Recovered/Resolved]
  - Arthralgia [Not Recovered/Not Resolved]
  - Pain [Not Recovered/Not Resolved]
  - Joint range of motion decreased [Not Recovered/Not Resolved]
  - Joint range of motion decreased [Not Recovered/Not Resolved]
  - Hypokinesia [Not Recovered/Not Resolved]
  - Osteoporosis [Not Recovered/Not Resolved]
  - Restless legs syndrome [Recovered/Resolved]
  - Arthropathy [Not Recovered/Not Resolved]
  - Activities of daily living impaired [Not Recovered/Not Resolved]
  - Fibromyalgia [Not Recovered/Not Resolved]
  - Somnolence [Recovered/Resolved]
  - Calcium deficiency [Not Recovered/Not Resolved]
  - Pollakiuria [Recovered/Resolved]
